FAERS Safety Report 15937054 (Version 1)
Quarter: 2019Q1

REPORT INFORMATION
  Report Type: Spontaneous
  Country: US (occurrence: US)
  Receive Date: 20190208
  Receipt Date: 20190208
  Transmission Date: 20190417
  Serious: Yes (Hospitalization, Other)
  Sender: FDA-Public Use
  Company Number: None

PATIENT
  Age: 66 Year
  Sex: Female
  Weight: 95.4 kg

DRUGS (9)
  1. GENERIC LEVAQUIN [Suspect]
     Active Substance: LEVOFLOXACIN
     Indication: BRONCHITIS
     Dosage: ?          QUANTITY:1 TABLET(S);?
     Route: 048
     Dates: start: 20100101, end: 20180215
  2. AMIODARONE [Concomitant]
     Active Substance: AMIODARONE
  3. VITAMIN D [Concomitant]
     Active Substance: CHOLECALCIFEROL
  4. METAMUCIL [Concomitant]
     Active Substance: PLANTAGO SEED
  5. MIRALAX [Concomitant]
     Active Substance: POLYETHYLENE GLYCOL 3350
  6. GENERIC LEVAQUIN [Suspect]
     Active Substance: LEVOFLOXACIN
     Indication: PNEUMONIA
     Dosage: ?          QUANTITY:1 TABLET(S);?
     Route: 048
     Dates: start: 20100101, end: 20180215
  7. ALLEGRA [Concomitant]
     Active Substance: FEXOFENADINE HYDROCHLORIDE
  8. GENERIC LEVAQUIN [Suspect]
     Active Substance: LEVOFLOXACIN
     Indication: BRONCHIECTASIS
     Dosage: ?          QUANTITY:1 TABLET(S);?
     Route: 048
     Dates: start: 20100101, end: 20180215
  9. WARFARIN [Concomitant]
     Active Substance: WARFARIN

REACTIONS (4)
  - Atrial fibrillation [None]
  - Chordae tendinae rupture [None]
  - Tricuspid valve disease [None]
  - Mitral valve incompetence [None]

NARRATIVE: CASE EVENT DATE: 20180417
